FAERS Safety Report 24431151 (Version 1)
Quarter: 2024Q4

REPORT INFORMATION
  Report Type: Spontaneous
  Country: US (occurrence: US)
  Receive Date: 20241014
  Receipt Date: 20241014
  Transmission Date: 20250115
  Serious: Yes (Other)
  Sender: BRISTOL-MYERS SQUIBB COMPANY
  Company Number: US-BRISTOL-MYERS SQUIBB COMPANY-2024-161017

PATIENT
  Age: 75 Year
  Sex: Male
  Weight: 93.89 kg

DRUGS (2)
  1. REVLIMID [Suspect]
     Active Substance: LENALIDOMIDE
     Indication: Plasma cell myeloma
     Route: 048
     Dates: end: 202409
  2. REVLIMID [Suspect]
     Active Substance: LENALIDOMIDE
     Dates: start: 202410

REACTIONS (1)
  - Skin cancer [Unknown]
